FAERS Safety Report 6823063-2 (Version None)
Quarter: 2010Q3

REPORT INFORMATION
  Report Type: 
  Country: None (occurrence: None)
  Receive Date: 20100708
  Receipt Date: 20100629
  Transmission Date: 20110219
  Serious: Yes (Hospitalization)
  Sender: FDA-Public Use
  Company Number: B0664388A

PATIENT
  Age: 76 Year
  Sex: Female

DRUGS (6)
  1. PROPAFENONE HCL [Suspect]
     Indication: ATRIAL FIBRILLATION
     Dosage: 600MG PER DAY
     Route: 048
     Dates: start: 20100202
  2. DIGOXIN [Suspect]
     Indication: ATRIAL FIBRILLATION
     Dosage: .25MG PER DAY
     Route: 048
     Dates: start: 20100202, end: 20100420
  3. FUROSEMIDE [Suspect]
     Indication: CARDIAC FAILURE
     Route: 048
     Dates: start: 20100203, end: 20100629
  4. CAPTOPRIL [Suspect]
     Dosage: 25MG TWICE PER DAY
     Route: 048
     Dates: start: 20100215
  5. DILTIAZEM [Concomitant]
     Indication: CARDIAC FAILURE
     Dosage: 960MG PER DAY
     Route: 048
     Dates: start: 20100202
  6. CARBIMAZOLE [Concomitant]
     Indication: HYPERTHYROIDISM
     Dates: start: 20100202

REACTIONS (3)
  - DRUG INTERACTION [None]
  - DRUG TOXICITY [None]
  - VOMITING [None]
